FAERS Safety Report 7224464-3 (Version None)
Quarter: 2011Q1

REPORT INFORMATION
  Report Type: 
  Country: None (occurrence: None)
  Receive Date: 20110106
  Receipt Date: 20110106
  Transmission Date: 20110831
  Serious: Yes (Disabling)
  Sender: FDA-Public Use
  Company Number: None

PATIENT
  Sex: Female
  Weight: 50.8029 kg

DRUGS (2)
  1. RECLAST [Suspect]
     Indication: OSTEOPOROSIS
     Dosage: 1 X YEAR
     Dates: start: 20101019
  2. RECLAST [Suspect]
     Indication: SPINAL FRACTURE
     Dosage: 1 X YEAR
     Dates: start: 20101019

REACTIONS (3)
  - SPINAL FRACTURE [None]
  - DRUG INEFFECTIVE [None]
  - PAIN [None]
